FAERS Safety Report 16690259 (Version 1)
Quarter: 2019Q3

REPORT INFORMATION
  Report Type: Spontaneous
  Country: US (occurrence: US)
  Receive Date: 20190809
  Receipt Date: 20190809
  Transmission Date: 20191004
  Serious: No
  Sender: FDA-Public Use
  Company Number: US-ROCHE-2202990

PATIENT
  Sex: Female

DRUGS (2)
  1. LETROZOLE. [Concomitant]
     Active Substance: LETROZOLE
     Indication: BREAST CANCER
     Dosage: TAKING FOR THE PAST 18 MONTHS ;ONGOING: YES
     Route: 065
  2. BONIVA [Suspect]
     Active Substance: IBANDRONATE SODIUM
     Indication: OSTEOPENIA
     Dosage: ONGOING:YES
     Route: 065

REACTIONS (2)
  - Root canal infection [Not Recovered/Not Resolved]
  - Oesophageal pain [Not Recovered/Not Resolved]
